FAERS Safety Report 20707987 (Version 1)
Quarter: 2022Q2

REPORT INFORMATION
  Report Type: Spontaneous
  Country: US (occurrence: US)
  Receive Date: 20220414
  Receipt Date: 20220414
  Transmission Date: 20220721
  Serious: No
  Sender: FDA-Public Use
  Company Number: US-ChurchDwight-2022-CDW-00024

PATIENT
  Sex: Female

DRUGS (1)
  1. HOMEOPATHICS [Suspect]
     Active Substance: HOMEOPATHICS
     Indication: Product used for unknown indication
     Route: 045

REACTIONS (2)
  - Anosmia [Not Recovered/Not Resolved]
  - Ageusia [Not Recovered/Not Resolved]

NARRATIVE: CASE EVENT DATE: 20220403
